FAERS Safety Report 7579881-9 (Version None)
Quarter: 2011Q2

REPORT INFORMATION
  Report Type: 
  Country: None (occurrence: None)
  Receive Date: 20110629
  Receipt Date: 20110616
  Transmission Date: 20111010
  Serious: Yes (Hospitalization, Other)
  Sender: FDA-Public Use
  Company Number: DE-ELI_LILLY_AND_COMPANY-DE201106004509

PATIENT
  Sex: Female

DRUGS (3)
  1. ERGOCALCIFEROL [Concomitant]
     Dosage: UNK, UNKNOWN
     Route: 065
  2. FORTEO [Suspect]
     Indication: OSTEOPOROSIS
     Dosage: UNK, QD
     Route: 058
     Dates: start: 20100920, end: 20110301
  3. FORTEO [Suspect]
     Dosage: UNK
     Dates: start: 20110101

REACTIONS (2)
  - ROAD TRAFFIC ACCIDENT [None]
  - STERNAL FRACTURE [None]
